FAERS Safety Report 9951472 (Version 1)
Quarter: 2014Q1

REPORT INFORMATION
  Report Type: Spontaneous
  Country: FR (occurrence: FR)
  Receive Date: 20140304
  Receipt Date: 20140304
  Transmission Date: 20141002
  Serious: Yes (Hospitalization)
  Sender: FDA-Public Use
  Company Number: FR-JNJFOC-20140300258

PATIENT
  Age: 89 Year
  Sex: Female

DRUGS (8)
  1. TOPALGIC [Suspect]
     Indication: PRODUCT USED FOR UNKNOWN INDICATION
     Route: 048
     Dates: start: 20131217, end: 20131224
  2. CEFTRIAXONE SODIUM [Suspect]
     Indication: PRODUCT USED FOR UNKNOWN INDICATION
     Route: 042
     Dates: start: 20131216, end: 20131223
  3. OFLOXACINE [Suspect]
     Indication: PRODUCT USED FOR UNKNOWN INDICATION
     Route: 042
     Dates: start: 20131216, end: 20131223
  4. PERFALGAN [Suspect]
     Indication: PRODUCT USED FOR UNKNOWN INDICATION
     Route: 042
     Dates: start: 20131216, end: 20131224
  5. ACICLOVIR [Suspect]
     Indication: HERPES VIRUS INFECTION
     Route: 042
     Dates: start: 20131221, end: 20140103
  6. CLAMOXYL [Suspect]
     Indication: PRODUCT USED FOR UNKNOWN INDICATION
     Route: 042
     Dates: start: 20131224, end: 20140102
  7. FUROSEMIDE SODIUM [Suspect]
     Indication: PRODUCT USED FOR UNKNOWN INDICATION
     Route: 042
     Dates: start: 20131216, end: 20131230
  8. FRAGMINE [Concomitant]
     Indication: PROPHYLAXIS
     Route: 065
     Dates: start: 20131216

REACTIONS (3)
  - Thrombophlebitis superficial [Recovering/Resolving]
  - Deep vein thrombosis [Recovering/Resolving]
  - Confusional state [Recovered/Resolved]
